FAERS Safety Report 5153801-9 (Version None)
Quarter: 2006Q4

REPORT INFORMATION
  Report Type: 
  Country: None (occurrence: None)
  Receive Date: 20061120
  Receipt Date: 20061031
  Transmission Date: 20070319
  Serious: Yes (Hospitalization)
  Sender: FDA-Public Use
  Company Number: PHNU2006DE03578

PATIENT
  Age: 69 Year
  Sex: Male

DRUGS (1)
  1. EMSELEX EXTENDED RELEASE [Suspect]
     Indication: URGE INCONTINENCE
     Route: 048
     Dates: start: 20061001

REACTIONS (6)
  - ABDOMINAL DISTENSION [None]
  - ABDOMINAL PAIN [None]
  - CONSTIPATION [None]
  - GASTROINTESTINAL TUBE INSERTION [None]
  - SUBILEUS [None]
  - VOMITING [None]
